FAERS Safety Report 12181747 (Version 1)
Quarter: 2016Q1

REPORT INFORMATION
  Report Type: Spontaneous
  Country: US (occurrence: US)
  Receive Date: 20160315
  Receipt Date: 20160315
  Transmission Date: 20160526
  Serious: Yes (Other)
  Sender: FDA-Public Use
  Company Number: US-GILEAD-2016-0202789

PATIENT
  Age: 56 Year
  Sex: Male

DRUGS (3)
  1. RALTEGRAVIR. [Concomitant]
     Active Substance: RALTEGRAVIR
  2. GENVOYA [Suspect]
     Active Substance: COBICISTAT\ELVITEGRAVIR\EMTRICITABINE\TENOFOVIR ALAFENAMIDE FUMARATE
     Indication: PRODUCT USED FOR UNKNOWN INDICATION
     Dosage: UNK
     Route: 065
     Dates: start: 201602
  3. TRUVADA [Suspect]
     Active Substance: EMTRICITABINE\TENOFOVIR DISOPROXIL FUMARATE
     Indication: PRODUCT USED FOR UNKNOWN INDICATION
     Route: 065

REACTIONS (4)
  - Transaminases increased [Unknown]
  - Night sweats [Unknown]
  - White blood cell count increased [Unknown]
  - Sinus operation [Unknown]

NARRATIVE: CASE EVENT DATE: 201602
